FAERS Safety Report 7177746 (Version 2)
Quarter: 2012Q4

REPORT INFORMATION
  Report Type: 
  Country: US (occurrence: US)
  Receive Date: 20091116
  Receipt Date: 20120928
  Transmission Date: 20130627
  Serious: Yes (Death)
  Sender: FDA-Public Use
  Company Number: US-MYLANLABS-2009S1019207

PATIENT
  Age: 49 Year
  Sex: Female
  Weight: 92.99 kg

DRUGS (11)
  1. FENTANYL TRANSDERMAL SYSTEM [Suspect]
     Indication: NECK PAIN
     Dosage: Q72H
     Route: 062
     Dates: end: 20061226
  2. IBUPROFEN [Concomitant]
  3. TRAZODONE [Concomitant]
  4. GABAPENTIN [Concomitant]
  5. CYCLOBENZAPRINE [Concomitant]
  6. CITALOPRAM [Concomitant]
  7. ADVAIR [Concomitant]
  8. COMBIVENT [Concomitant]
  9. SINGULAIR [Concomitant]
  10. AVALIDE [Concomitant]
  11. NASACORT [Concomitant]

REACTIONS (2)
  - Asthma [Fatal]
  - Respiratory depression [Fatal]
